FAERS Safety Report 26148332 (Version 1)
Quarter: 2025Q4

REPORT INFORMATION
  Report Type: Spontaneous
  Country: US (occurrence: US)
  Receive Date: 20251212
  Receipt Date: 20251212
  Transmission Date: 20260117
  Serious: Yes (Hospitalization)
  Sender: YUNG SHIN PHARMACEUTICAL INDUSTRIAL
  Company Number: US-Yung Shin Pharmaceutical Ind.  Co., Ltd.-2190400

PATIENT
  Age: 65 Year
  Sex: Female

DRUGS (1)
  1. ENTECAVIR [Suspect]
     Active Substance: ENTECAVIR

REACTIONS (4)
  - Fatigue [Recovered/Resolved]
  - Myopathy [Recovered/Resolved]
  - Mental status changes [Recovered/Resolved]
  - Muscular weakness [Recovered/Resolved]
